FAERS Safety Report 10044970 (Version 1)
Quarter: 2014Q1

REPORT INFORMATION
  Report Type: Spontaneous
  Country: US (occurrence: US)
  Receive Date: 20140328
  Receipt Date: 20140328
  Transmission Date: 20141002
  Serious: No
  Sender: FDA-Public Use
  Company Number: US-PFIZER INC-2014087627

PATIENT
  Age: 85 Year
  Sex: Female

DRUGS (8)
  1. XELJANZ [Suspect]
     Indication: RHEUMATOID ARTHRITIS
     Dosage: 5 MG, 2X/DAY
     Route: 048
     Dates: start: 20131002
  2. PREDNISONE [Concomitant]
     Dosage: UNK
  3. TRAMADOL [Concomitant]
     Dosage: UNK
  4. IBUPROFEN [Concomitant]
     Dosage: UNK
  5. FISH OIL [Concomitant]
     Dosage: UNK
  6. VERAPAMIL [Concomitant]
     Dosage: UNK
  7. CITRACAL [Concomitant]
     Dosage: UNK
  8. VITAMIN D [Concomitant]
     Dosage: UNK

REACTIONS (1)
  - Fatigue [Unknown]
